FAERS Safety Report 20388753 (Version 1)
Quarter: 2022Q1

REPORT INFORMATION
  Report Type: Spontaneous
  Country: JP (occurrence: JP)
  Receive Date: 20220128
  Receipt Date: 20220128
  Transmission Date: 20220423
  Serious: Yes (Other)
  Sender: FDA-Public Use
  Company Number: JP-SUN PHARMACEUTICAL INDUSTRIES LTD-2022R1-324311

PATIENT
  Age: 70 Year
  Sex: Female
  Weight: 44 kg

DRUGS (1)
  1. DOCETAXEL [Suspect]
     Active Substance: DOCETAXEL
     Indication: Chemotherapy
     Dosage: 60 MILLIGRAM/SQ. METER, DAILY
     Route: 042

REACTIONS (1)
  - Disease progression [Unknown]
